FAERS Safety Report 9785807 (Version 2)
Quarter: 2014Q2

REPORT INFORMATION
  Report Type: Spontaneous
  Country: PL (occurrence: PL)
  Receive Date: 20131227
  Receipt Date: 20140402
  Transmission Date: 20141212
  Serious: Yes (Other)
  Sender: FDA-Public Use
  Company Number: PL-JNJFOC-20131213496

PATIENT
  Age: 76 Year
  Sex: Female
  Weight: 65 kg

DRUGS (10)
  1. XARELTO [Suspect]
     Indication: PRODUCT USED FOR UNKNOWN INDICATION
     Route: 048
     Dates: end: 20130516
  2. NEBIVOLOL [Concomitant]
     Route: 065
     Dates: start: 201303
  3. DIGOXIN [Concomitant]
     Route: 065
  4. EUTHYROX [Concomitant]
     Route: 065
  5. RAMIPRIL [Concomitant]
     Route: 065
     Dates: start: 201303
  6. PANTOPRAZOLE [Concomitant]
     Route: 065
     Dates: start: 201303
  7. WARFARIN [Concomitant]
     Route: 065
  8. FUROSEMIDE [Concomitant]
     Route: 065
  9. SPIRONOL [Concomitant]
     Route: 065
  10. PERAZINE [Concomitant]
     Route: 065

REACTIONS (1)
  - Glomerular filtration rate decreased [Recovering/Resolving]
